FAERS Safety Report 14754109 (Version 1)
Quarter: 2018Q2

REPORT INFORMATION
  Report Type: Spontaneous
  Country: JP (occurrence: JP)
  Receive Date: 20180412
  Receipt Date: 20180412
  Transmission Date: 20180711
  Serious: Yes (Other)
  Sender: FDA-Public Use
  Company Number: JP-FRESENIUS KABI-FK201804437

PATIENT
  Age: 41 Year
  Sex: Male
  Weight: 90 kg

DRUGS (10)
  1. ALDOSTERONE RECEPTOR BLOCKER [Concomitant]
     Indication: BLOOD PRESSURE MANAGEMENT
     Route: 065
  2. PREGABALIN. [Concomitant]
     Active Substance: PREGABALIN
     Indication: DIABETIC RETINOPATHY
     Route: 065
  3. LEVOFLOXACIN. [Concomitant]
     Active Substance: LEVOFLOXACIN
     Indication: PYREXIA
  4. DULOXETINE. [Concomitant]
     Active Substance: DULOXETINE
     Indication: DIABETIC RETINOPATHY
     Route: 065
  5. MEXILETINE [Concomitant]
     Active Substance: MEXILETINE
     Indication: DIABETIC RETINOPATHY
     Route: 065
  6. LEVOFLOXACIN. [Concomitant]
     Active Substance: LEVOFLOXACIN
     Indication: FATIGUE
     Route: 048
  7. VANCOMYCIN (MANUFACTURER UNKNOWN) [Suspect]
     Active Substance: VANCOMYCIN
     Route: 042
  8. PIPERACILLIN/TAZOBACTAM (MANUFACTURER UNKNOWN) [Suspect]
     Active Substance: PIPERACILLIN SODIUM\TAZOBACTAM SODIUM
     Indication: NECROTISING FASCIITIS
     Route: 065
  9. VANCOMYCIN (MANUFACTURER UNKNOWN) [Suspect]
     Active Substance: VANCOMYCIN
     Indication: NECROTISING FASCIITIS
     Route: 042
  10. INSULIN [Concomitant]
     Active Substance: INSULIN NOS
     Indication: DIABETES MELLITUS
     Route: 065

REACTIONS (3)
  - Tubulointerstitial nephritis [Recovered/Resolved]
  - Acute kidney injury [Recovered/Resolved]
  - Renal tubular necrosis [Recovered/Resolved]
